FAERS Safety Report 6267402-2 (Version None)
Quarter: 2009Q3

REPORT INFORMATION
  Report Type: 
  Country: None (occurrence: None)
  Receive Date: 20090710
  Receipt Date: 20090630
  Transmission Date: 20100115
  Serious: Yes (Death)
  Sender: FDA-Public Use
  Company Number: CERZ-1000740

PATIENT
  Age: 32 Month
  Sex: Male
  Weight: 11 kg

DRUGS (2)
  1. CEREZYME [Suspect]
     Indication: GAUCHER'S DISEASE
     Dosage: 60 U/KG, Q2W, INTRAVENOUS; INTRAVENOUS
     Route: 042
     Dates: start: 20071001, end: 20090522
  2. CEREZYME [Suspect]
     Indication: GAUCHER'S DISEASE
     Dosage: 60 U/KG, Q2W, INTRAVENOUS; INTRAVENOUS
     Route: 042
     Dates: start: 20081101

REACTIONS (6)
  - INFUSION RELATED REACTION [None]
  - LUNG INFECTION [None]
  - LYMPHADENOPATHY [None]
  - RESPIRATORY ARREST [None]
  - SHOCK [None]
  - TRISMUS [None]
